FAERS Safety Report 11008954 (Version 3)
Quarter: 2015Q2

REPORT INFORMATION
  Report Type: Spontaneous
  Country: US (occurrence: US)
  Receive Date: 20150410
  Receipt Date: 20150521
  Transmission Date: 20150821
  Serious: No
  Sender: FDA-Public Use
  Company Number: US-PFIZER INC-2015122020

PATIENT
  Age: 37 Year
  Sex: Male

DRUGS (2)
  1. ADRIAMYCIN [Suspect]
     Active Substance: DOXORUBICIN HYDROCHLORIDE
     Indication: THYMIC CANCER METASTATIC
     Dosage: 300/M2, (5 CYCLE)
     Dates: start: 200711
  2. DOXIL [Suspect]
     Active Substance: DOXORUBICIN HYDROCHLORIDE
     Dosage: UNK
     Dates: start: 2007

REACTIONS (1)
  - Ejection fraction decreased [Unknown]
